FAERS Safety Report 6469202-7 (Version None)
Quarter: 2009Q4

REPORT INFORMATION
  Report Type: 
  Country: None (occurrence: None)
  Receive Date: 20091203
  Receipt Date: 20090717
  Transmission Date: 20100525
  Serious: Yes (Hospitalization, Other)
  Sender: FDA-Public Use
  Company Number: US-ELI_LILLY_AND_COMPANY-US200702004882

PATIENT
  Sex: Female
  Weight: 115.65 kg

DRUGS (9)
  1. BYETTA [Suspect]
     Indication: TYPE 2 DIABETES MELLITUS
     Dosage: 5 UG, 2/D
     Route: 058
  2. BYETTA [Suspect]
     Dosage: 10 UG, 2/D
     Route: 058
     Dates: start: 20051001
  3. BYETTA [Suspect]
     Dosage: 10 UG, 2/D
     Route: 058
  4. GLUCOPHAGE [Concomitant]
     Indication: TYPE 2 DIABETES MELLITUS
     Dosage: 1000 MG, 2/D
     Route: 048
  5. PROPRANOLOL [Concomitant]
     Indication: HEART RATE IRREGULAR
     Dosage: 10 MG, DAILY (1/D)
     Route: 048
  6. VITAMIN B-12 [Concomitant]
     Indication: PERNICIOUS ANAEMIA
     Route: 058
     Dates: start: 20060101
  7. VITAMIN B-12 [Concomitant]
     Route: 060
     Dates: start: 20060101
  8. DEXAMETHASONE TAB [Concomitant]
     Indication: SUPPLEMENTATION THERAPY
     Dosage: UNK, 2/D
     Route: 048
     Dates: start: 20090601
  9. SUPER B COMPLEX [Concomitant]
     Indication: PERNICIOUS ANAEMIA
     Dates: start: 20060101

REACTIONS (10)
  - BENIGN FEMALE REPRODUCTIVE TRACT NEOPLASM [None]
  - BREAST CANCER STAGE II [None]
  - BREAST MASS [None]
  - DECREASED APPETITE [None]
  - HORMONE LEVEL ABNORMAL [None]
  - NAUSEA [None]
  - UTERINE ENLARGEMENT [None]
  - UTERINE PAIN [None]
  - VITAMIN D DECREASED [None]
  - WEIGHT DECREASED [None]
